FAERS Safety Report 4463838-0 (Version None)
Quarter: 2004Q4

REPORT INFORMATION
  Report Type: 
  Country: None (occurrence: None)
  Receive Date: 20041001
  Receipt Date: 20040928
  Transmission Date: 20050328
  Serious: Yes (Life-Threatening, Other)
  Sender: FDA-Public Use
  Company Number: PHBS2004RO12814

PATIENT
  Age: 62 Year
  Sex: Male
  Weight: 75 kg

DRUGS (5)
  1. LESCOL XL [Suspect]
     Indication: HYPERCHOLESTEROLAEMIA
     Dosage: 80 MG/DAY
     Route: 048
     Dates: start: 20040917, end: 20040922
  2. ASPIRIN [Concomitant]
  3. PREDUCTAL [Concomitant]
  4. BETA BLOCKING AGENTS [Concomitant]
  5. ISOSORBIDE MONONITRATE [Concomitant]

REACTIONS (6)
  - CHOKING SENSATION [None]
  - DYSPHAGIA [None]
  - EYELID OEDEMA [None]
  - FACE OEDEMA [None]
  - RASH PAPULAR [None]
  - URTICARIA GENERALISED [None]
